FAERS Safety Report 19715951 (Version 1)
Quarter: 2021Q3

REPORT INFORMATION
  Report Type: Report from Study
  Country: PT (occurrence: PT)
  Receive Date: 20210819
  Receipt Date: 20210819
  Transmission Date: 20211014
  Serious: Yes (Other)
  Sender: FDA-Public Use
  Company Number: PT-BAUSCH-BL-2021-028069

PATIENT
  Age: 45 Year
  Sex: Female

DRUGS (3)
  1. KYNTHEUM [Suspect]
     Active Substance: BRODALUMAB
     Indication: PSORIASIS
     Dosage: WEEK 0,1,2 EVERY 2 WEEKS
     Route: 065
     Dates: start: 20200721, end: 202104
  2. KYNTHEUM [Suspect]
     Active Substance: BRODALUMAB
     Dosage: EVERY 3 WEEKS
     Route: 065
     Dates: start: 20210803
  3. KYNTHEUM [Suspect]
     Active Substance: BRODALUMAB
     Dosage: EVERY 2 WEEKS
     Route: 065
     Dates: start: 202105, end: 20210803

REACTIONS (3)
  - Therapy interrupted [Recovered/Resolved]
  - Pelvic prolapse [Recovered/Resolved]
  - Inappropriate schedule of product administration [Unknown]

NARRATIVE: CASE EVENT DATE: 202011
